FAERS Safety Report 15808725 (Version 1)
Quarter: 2019Q1

REPORT INFORMATION
  Report Type: Spontaneous
  Country: US (occurrence: US)
  Receive Date: 20190110
  Receipt Date: 20190110
  Transmission Date: 20190417
  Serious: Yes (Hospitalization, Other)
  Sender: FDA-Public Use
  Company Number: US-PURDUE-USA-2019-0145610

PATIENT
  Sex: Female

DRUGS (4)
  1. DILAUDID [Suspect]
     Active Substance: HYDROMORPHONE HYDROCHLORIDE
     Indication: PAIN
     Dosage: UNK
     Route: 048
     Dates: end: 2018
  2. OXYCONTIN [Suspect]
     Active Substance: OXYCODONE HYDROCHLORIDE
     Indication: PAIN
     Dosage: 20 MG, UNK
     Route: 048
     Dates: start: 2018
  3. KLONOPIN [Suspect]
     Active Substance: CLONAZEPAM
     Indication: PRODUCT USED FOR UNKNOWN INDICATION
     Dosage: UNK
     Route: 065
     Dates: end: 2018
  4. SENNA                              /00142201/ [Concomitant]
     Active Substance: SENNA LEAF
     Indication: CONSTIPATION PROPHYLAXIS
     Dosage: UNK
     Route: 048

REACTIONS (10)
  - Multiple fractures [Not Recovered/Not Resolved]
  - Splinter [Unknown]
  - Anal incontinence [Not Recovered/Not Resolved]
  - Skin injury [Not Recovered/Not Resolved]
  - Product residue present [Unknown]
  - Renal injury [Not Recovered/Not Resolved]
  - Wound complication [Unknown]
  - Hip fracture [Unknown]
  - Urinary tract infection [Unknown]
  - Inadequate analgesia [Unknown]

NARRATIVE: CASE EVENT DATE: 2006
